FAERS Safety Report 8880865 (Version 3)
Quarter: 2012Q4

REPORT INFORMATION
  Report Type: 
  Country: JP (occurrence: JP)
  Receive Date: 20121101
  Receipt Date: 20121127
  Transmission Date: 20130627
  Serious: Yes (Death, Other)
  Sender: FDA-Public Use
  Company Number: JP-ELI_LILLY_AND_COMPANY-JP201210002878

PATIENT
  Age: 72 None
  Sex: Male
  Weight: 39 kg

DRUGS (6)
  1. ZYPREXA [Suspect]
     Indication: SCHIZOPHRENIA
     Dosage: 20 mg, qd
     Route: 048
  2. ALLOPURINOL [Concomitant]
     Indication: HYPERURICAEMIA
     Dosage: 100 mg, qd
     Route: 048
  3. TASMOLIN [Concomitant]
     Indication: EXTRAPYRAMIDAL DISORDER
     Dosage: 4 mg, tid
     Route: 048
  4. HIBERNA [Concomitant]
     Indication: EXTRAPYRAMIDAL DISORDER
     Dosage: 75 mg, tid
     Route: 048
  5. ROZEREM [Concomitant]
     Indication: INSOMNIA
     Dosage: 8 mg, qd
     Route: 048
  6. FORSENID [Concomitant]
     Indication: CONSTIPATION
     Dosage: 9 DF, qd
     Route: 048

REACTIONS (7)
  - Sudden death [Fatal]
  - Head injury [Unknown]
  - Fall [Recovered/Resolved]
  - Salivary hypersecretion [Unknown]
  - Pyrexia [Recovered/Resolved]
  - Orthostatic hypotension [Recovered/Resolved]
  - Hyperuricaemia [Unknown]
